FAERS Safety Report 7806417-7 (Version None)
Quarter: 2011Q4

REPORT INFORMATION
  Report Type: 
  Country: None (occurrence: None)
  Receive Date: 20111011
  Receipt Date: 20111005
  Transmission Date: 20120403
  Serious: No
  Sender: FDA-Public Use
  Company Number: US-B.I. PHARMACEUTICALS,INC./RIDGEFIELD-2011-BP-19993BP

PATIENT
  Age: 82 Year
  Sex: Male

DRUGS (8)
  1. XOPENEX [Concomitant]
     Indication: CHRONIC OBSTRUCTIVE PULMONARY DISEASE
     Dates: start: 20100101
  2. VALIUM [Concomitant]
     Indication: ANXIETY
     Dosage: 1 MG
     Route: 048
  3. ASCORBIC ACID [Concomitant]
     Indication: SUPPLEMENTATION THERAPY
     Route: 048
  4. TRUSOPT [Concomitant]
     Indication: GLAUCOMA
     Dates: start: 19800101
  5. PRADAXA [Suspect]
     Indication: ATRIAL FIBRILLATION
     Dosage: 300 MG
     Route: 048
     Dates: start: 20110701
  6. ADVAIR DISKUS 100/50 [Concomitant]
     Indication: CHRONIC OBSTRUCTIVE PULMONARY DISEASE
     Dates: start: 20100101
  7. XALATAN [Concomitant]
     Indication: GLAUCOMA
     Dates: start: 19800101
  8. LOPRESSOR [Concomitant]
     Indication: HYPERTENSION
     Dates: start: 19800101

REACTIONS (3)
  - FATIGUE [None]
  - ABDOMINAL DISCOMFORT [None]
  - FLUSHING [None]
